FAERS Safety Report 10713562 (Version 4)
Quarter: 2015Q1

REPORT INFORMATION
  Report Type: Report from Study
  Country: DE (occurrence: DE)
  Receive Date: 20150115
  Receipt Date: 20150226
  Transmission Date: 20150721
  Serious: Yes (Other)
  Sender: FDA-Public Use
  Company Number: DE-BAYER-2014-176602

PATIENT
  Age: 74 Year
  Sex: Male

DRUGS (13)
  1. ADEMPAS [Suspect]
     Active Substance: RIOCIGUAT
     Indication: PULMONARY HYPERTENSION
     Dosage: 1.0 MG, TID
     Route: 048
     Dates: start: 20141023, end: 20141120
  2. ADEMPAS [Suspect]
     Active Substance: RIOCIGUAT
     Indication: PULMONARY HYPERTENSION
     Dosage: 2.5 MG, TID
  3. NEBIVOLOL [Concomitant]
     Active Substance: NEBIVOLOL
     Dosage: 5 MG  1-0-0
  4. ADEMPAS [Suspect]
     Active Substance: RIOCIGUAT
     Indication: PULMONARY HYPERTENSION
     Dosage: 2.0 MG, TID
     Route: 048
     Dates: start: 20141121
  5. ADEMPAS [Suspect]
     Active Substance: RIOCIGUAT
     Indication: PULMONARY HYPERTENSION
     Dosage: 2.0 MG, TID
     Dates: start: 20141216
  6. RAMIPRIL. [Concomitant]
     Active Substance: RAMIPRIL
     Dosage: 5 MG   1-0-1/2
  7. TORASEMID [Concomitant]
     Active Substance: TORSEMIDE
     Dosage: 20 MG   1-0-0
  8. EPLERENONE. [Concomitant]
     Active Substance: EPLERENONE
     Dosage: 50 MG  1-0-0
  9. XARELTO [Concomitant]
     Active Substance: RIVAROXABAN
     Dosage: 20 MG  1-0-0
  10. ALLOPURINOL. [Concomitant]
     Active Substance: ALLOPURINOL
     Dosage: 150 MG   0-0-1
  11. ATORVASTATIN [Concomitant]
     Active Substance: ATORVASTATIN
     Dosage: 40 MG  0-0-1
  12. AQUAPHOR [Concomitant]
     Active Substance: PETROLATUM
     Dosage: 20 MG  1-0-0
  13. MAGNESIUM CARBONATE [Concomitant]
     Active Substance: MAGNESIUM CARBONATE
     Dosage: 0-0-1

REACTIONS (7)
  - Fatigue [Unknown]
  - Dizziness [Recovered/Resolved]
  - Hypotension [None]
  - Syncope [Not Recovered/Not Resolved]
  - Dizziness [Not Recovered/Not Resolved]
  - Malaise [None]
  - Somnolence [Unknown]

NARRATIVE: CASE EVENT DATE: 2014
